FAERS Safety Report 7112907-5 (Version None)
Quarter: 2010Q4

REPORT INFORMATION
  Report Type: 
  Country: None (occurrence: None)
  Receive Date: 20101119
  Receipt Date: 20100527
  Transmission Date: 20110411
  Serious: No
  Sender: FDA-Public Use
  Company Number: US-BRISTOL-MYERS SQUIBB COMPANY-15122906

PATIENT
  Age: 72 Year
  Sex: Female

DRUGS (5)
  1. AVALIDE [Suspect]
     Dosage: 1 DF = 300/12.5MG
  2. VERAPAMIL [Concomitant]
  3. ANTIVERT [Concomitant]
  4. POTASSIUM CHLORIDE [Concomitant]
  5. NEURONTIN [Concomitant]

REACTIONS (3)
  - DIZZINESS [None]
  - HEADACHE [None]
  - MUSCLE SPASMS [None]
